FAERS Safety Report 5249197-4 (Version None)
Quarter: 2007Q1

REPORT INFORMATION
  Report Type: 
  Country: None (occurrence: None)
  Receive Date: 20070228
  Receipt Date: 20070219
  Transmission Date: 20070707
  Serious: Yes (Hospitalization)
  Sender: FDA-Public Use
  Company Number: AT-JNJFOC-20070106395

PATIENT
  Age: 7 Decade
  Sex: Female

DRUGS (4)
  1. HALDOL [Suspect]
     Indication: SCHIZOPHRENIA, PARANOID TYPE
     Dosage: DOSE 5 MG UP TO 15 MG.
     Route: 065
  2. RISPERDAL [Concomitant]
  3. GEWACALM [Concomitant]
  4. GEWACALM [Concomitant]

REACTIONS (1)
  - PULMONARY EMBOLISM [None]
